FAERS Safety Report 16144823 (Version 1)
Quarter: 2019Q2

REPORT INFORMATION
  Report Type: Other
  Country: GB (occurrence: GB)
  Receive Date: 20190402
  Receipt Date: 20190402
  Transmission Date: 20190711
  Serious: No
  Sender: FDA-Public Use
  Company Number: GB-LUPIN PHARMACEUTICALS INC.-2018-07269

PATIENT
  Age: 63 Year
  Sex: Male
  Weight: 91 kg

DRUGS (11)
  1. GLYCERYL TRINITRATE [Concomitant]
     Active Substance: NITROGLYCERIN
     Indication: ILL-DEFINED DISORDER
     Dosage: 01 DF, PRN, ONE PUFF AS NEEDED
     Route: 065
     Dates: start: 20170918
  2. FINASTERIDE. [Concomitant]
     Active Substance: FINASTERIDE
     Indication: ILL-DEFINED DISORDER
     Dosage: UNK UNK, QD
     Route: 065
     Dates: start: 20170918
  3. SERTRALINE HYDROCHLORIDE TABLETS [Suspect]
     Active Substance: SERTRALINE HYDROCHLORIDE
     Indication: PRODUCT USED FOR UNKNOWN INDICATION
     Dosage: 100 MG, QD
     Route: 065
  4. RAMIPRIL. [Concomitant]
     Active Substance: RAMIPRIL
     Indication: ILL-DEFINED DISORDER
     Dosage: UNK UNK, QD TAKE ONE DAILY
     Route: 065
     Dates: start: 20170918
  5. OMEPRAZOLE. [Concomitant]
     Active Substance: OMEPRAZOLE
     Indication: ILL-DEFINED DISORDER
     Dosage: UNK UNK, QD TAKE ONE DAILY
     Route: 065
     Dates: start: 20180110
  6. BECLOMETASONE [Concomitant]
     Active Substance: BECLOMETHASONE DIPROPIONATE
     Indication: ILL-DEFINED DISORDER
     Dosage: 02 DF, TID TWO PUFFS THREE TIMES DAILY
     Route: 065
     Dates: start: 20170918
  7. VENTOLIN [Concomitant]
     Active Substance: ALBUTEROL SULFATE
     Indication: ILL-DEFINED DISORDER
     Dosage: 02 DF, PRN
     Route: 065
     Dates: start: 20170918
  8. BISOPROLOL [Concomitant]
     Active Substance: BISOPROLOL
     Indication: ILL-DEFINED DISORDER
     Dosage: UNK UNK, QD
     Route: 065
     Dates: start: 20170918
  9. CLENIL MODULITE [Concomitant]
     Active Substance: BECLOMETHASONE DIPROPIONATE
     Indication: ILL-DEFINED DISORDER
     Dosage: 02 DF, BID INHALE 2 DOSES TWICE DAILY
     Route: 055
     Dates: start: 20170920
  10. ACETYLSALICYLIC ACID [Concomitant]
     Active Substance: ASPIRIN
     Indication: ILL-DEFINED DISORDER
     Dosage: UNK UNK, QD TAKE ONE DAILY
     Route: 065
     Dates: start: 20170918
  11. ATORVASTATIN [Concomitant]
     Active Substance: ATORVASTATIN
     Indication: ILL-DEFINED DISORDER
     Dosage: UNK UNK, QD TAKE ONE DAILY
     Route: 065
     Dates: start: 20170918

REACTIONS (1)
  - Yawning [Not Recovered/Not Resolved]

NARRATIVE: CASE EVENT DATE: 20180926
